FAERS Safety Report 17239155 (Version 1)
Quarter: 2020Q1

REPORT INFORMATION
  Report Type: Spontaneous
  Country: US (occurrence: US)
  Receive Date: 20200106
  Receipt Date: 20200106
  Transmission Date: 20200409
  Serious: No
  Sender: FDA-Public Use
  Company Number: US-ABBVIE-19K-163-2802693-00

PATIENT
  Sex: Male
  Weight: 104.42 kg

DRUGS (1)
  1. VENETOCLAX. [Suspect]
     Active Substance: VENETOCLAX
     Indication: CHRONIC LYMPHOCYTIC LEUKAEMIA
     Route: 048
     Dates: start: 2017, end: 20190521

REACTIONS (6)
  - Bone marrow disorder [Unknown]
  - Lymphocyte count decreased [Recovering/Resolving]
  - Immunoglobulins decreased [Not Recovered/Not Resolved]
  - Platelet count increased [Recovered/Resolved]
  - Platelet count decreased [Not Recovered/Not Resolved]
  - Neutrophil count decreased [Recovering/Resolving]

NARRATIVE: CASE EVENT DATE: 2017
